FAERS Safety Report 20430279 (Version 1)
Quarter: 2022Q1

REPORT INFORMATION
  Report Type: Report from Study
  Country: FR (occurrence: FR)
  Receive Date: 20220204
  Receipt Date: 20220204
  Transmission Date: 20220423
  Serious: Yes (Hospitalization)
  Sender: FDA-Public Use
  Company Number: FR-SERVIER-S20005418

PATIENT

DRUGS (4)
  1. PEGASPARGASE [Suspect]
     Active Substance: PEGASPARGASE
     Indication: Acute lymphocytic leukaemia
     Dosage: 4150 IU ON D15, D43
     Route: 042
     Dates: start: 20180126, end: 20180301
  2. TN UNSPECIFIED [Concomitant]
     Indication: Acute lymphocytic leukaemia
     Dosage: 39 MG, ON D1 TO D56
     Route: 048
     Dates: start: 20180321
  3. TN UNSPECIFIED [Concomitant]
     Indication: Acute lymphocytic leukaemia
     Dosage: 5000 MG/M? (8100 MG), ON D8, D22
     Route: 042
     Dates: start: 20180328
  4. TN UNSPECIFIED [Concomitant]
     Dosage: 15 MG, ON D9,D13
     Route: 037
     Dates: start: 20180329

REACTIONS (1)
  - Renal impairment [Recovered/Resolved]

NARRATIVE: CASE EVENT DATE: 20180419
